FAERS Safety Report 8500027-4 (Version None)
Quarter: 2012Q2

REPORT INFORMATION
  Report Type: 
  Country: None (occurrence: None)
  Receive Date: 20120629
  Receipt Date: 20120619
  Transmission Date: 20120825
  Serious: Yes (Hospitalization)
  Sender: FDA-Public Use
  Company Number: 2012060105

PATIENT
  Age: 28 Year
  Sex: Male

DRUGS (1)
  1. TRILYTE-CHERRY FLAVORED [Suspect]
     Indication: BOWEL PREPARATION
     Dosage: ORAL
     Route: 048
     Dates: start: 20120618, end: 20120618

REACTIONS (2)
  - CHOKING [None]
  - DRUG HYPERSENSITIVITY [None]
